FAERS Safety Report 8107433-0 (Version None)
Quarter: 2012Q1

REPORT INFORMATION
  Report Type: 
  Country: None (occurrence: None)
  Receive Date: 20120202
  Receipt Date: 20120127
  Transmission Date: 20120608
  Serious: Yes (Other)
  Sender: FDA-Public Use
  Company Number: US-SANOFI-AVENTIS-2012SA005853

PATIENT
  Age: 68 Year
  Sex: Male

DRUGS (9)
  1. BRIMONIDINE TARTRATE [Concomitant]
     Indication: GLAUCOMA
  2. SIMVASTATIN [Concomitant]
  3. DORZOLAMIDE [Concomitant]
     Indication: GLAUCOMA
  4. ENALAPRIL MALEATE [Concomitant]
  5. RESTASIS [Concomitant]
  6. FLUOROMETHOLONE [Concomitant]
     Indication: GLAUCOMA
  7. LANTUS [Suspect]
     Dosage: DOSE:22 UNIT(S)
     Route: 058
     Dates: start: 20010101
  8. METOPROLOL [Concomitant]
     Dosage: 50MG 1/2 TABLET BID
  9. HUMALOG [Concomitant]
     Dosage: 10 UNITS WITH MEALS TID

REACTIONS (5)
  - EYE INFECTION [None]
  - BLINDNESS [None]
  - BLINDNESS UNILATERAL [None]
  - DRUG DOSE OMISSION [None]
  - BLOOD GLUCOSE INCREASED [None]
